FAERS Safety Report 6643341-X (Version None)
Quarter: 2010Q1

REPORT INFORMATION
  Report Type: 
  Country: None (occurrence: None)
  Receive Date: 20100319
  Receipt Date: 20100309
  Transmission Date: 20100710
  Serious: Yes (Other)
  Sender: FDA-Public Use
  Company Number: GXKR2010GB02815

PATIENT
  Age: 49 Year
  Sex: Female

DRUGS (5)
  1. ACETYLSALICYLIC ACID SRT [Interacting]
     Indication: ANTICOAGULANT THERAPY
     Dosage: 150 MG, UNK
  2. ACETYLSALICYLIC ACID SRT [Interacting]
     Dosage: 75 MG, UNK
  3. CLOPIDOGREL [Suspect]
     Indication: ANTICOAGULANT THERAPY
  4. WARFARIN (NGX) [Interacting]
     Indication: ANTICOAGULANT THERAPY
  5. TIROFIBAN [Suspect]
     Route: 042

REACTIONS (4)
  - ABDOMINAL PAIN [None]
  - INFUSION SITE HAEMORRHAGE [None]
  - THROMBOLYSIS [None]
  - THROMBOSIS [None]
